FAERS Safety Report 8905065 (Version 1)
Quarter: 2012Q4

REPORT INFORMATION
  Report Type: 
  Country: US (occurrence: US)
  Receive Date: 20121111
  Receipt Date: 20121111
  Transmission Date: 20130627
  Serious: Yes (Other)
  Sender: FDA-Public Use
  Company Number: US-TEVA-369019USA

PATIENT
  Age: 19 Year
  Sex: Female

DRUGS (8)
  1. CISPLATIN [Suspect]
     Indication: BONE SARCOMA
     Dosage: 60 mg/m2 per day over 4h, days 1 and 2; weeks 1, 6, 12, 17)
     Route: 042
  2. METHOTREXATE [Suspect]
     Indication: BONE SARCOMA
     Dosage: 12 g/m2 over 4h; weeks 4, 5, 9, 10, 15, 16, 20, 21, 24, 25, 28, 29)
     Route: 065
  3. DOXORUBICIN [Suspect]
     Indication: BONE SARCOMA
     Dosage: 37.5 mg/m2 per day over 24h, days 1 and 2; weeks 1, 6, 12, 17, 22, 26
     Route: 042
  4. FOLINIC ACID [Concomitant]
     Dosage: administered following methotrexate
     Route: 065
  5. TOCOPHEROL [Concomitant]
     Route: 065
  6. THIOCTIC ACID [Concomitant]
     Route: 065
  7. UBIDECARENONE [Concomitant]
     Route: 065
  8. SODIUM CHLORIDE [Concomitant]
     Indication: BONE SARCOMA
     Dosage: 0.9%; administered with doxorubicin and cisplatin
     Route: 042

REACTIONS (5)
  - Febrile neutropenia [Unknown]
  - Stomatitis [Unknown]
  - Constipation [Unknown]
  - Thrombocytopenia [Unknown]
  - Alopecia [Unknown]
